FAERS Safety Report 13368521 (Version 1)
Quarter: 2017Q1

REPORT INFORMATION
  Report Type: Spontaneous
  Country: US (occurrence: US)
  Receive Date: 20170324
  Receipt Date: 20170324
  Transmission Date: 20170429
  Serious: No
  Sender: FDA-Public Use
  Company Number: US-PFIZER INC-2017126088

PATIENT
  Age: 60 Year
  Sex: Female
  Weight: 91.17 kg

DRUGS (2)
  1. SILDENAFIL CITRATE. [Suspect]
     Active Substance: SILDENAFIL CITRATE
     Dosage: UNK
  2. HYDROCODONE BITARTRATE AND ACETAMINOPHEN [Interacting]
     Active Substance: ACETAMINOPHEN\HYDROCODONE BITARTRATE
     Indication: BACK PAIN
     Dosage: UNK

REACTIONS (5)
  - Hypoaesthesia [Recovered/Resolved]
  - Drug dose omission [Unknown]
  - Dizziness [Unknown]
  - Feeling abnormal [Unknown]
  - Drug interaction [Unknown]
